FAERS Safety Report 8996601 (Version 2)
Quarter: 2013Q1

REPORT INFORMATION
  Report Type: Other
  Country: FR (occurrence: FR)
  Receive Date: 20130104
  Receipt Date: 20130109
  Transmission Date: 20140127
  Serious: Yes (Hospitalization)
  Sender: FDA-Public Use
  Company Number: FR-MPIJNJ-2012-08632

PATIENT
  Sex: 0

DRUGS (20)
  1. VELCADE [Suspect]
     Indication: PRODUCT USED FOR UNKNOWN INDICATION
     Dosage: 1.3 MG/M2, UNK
     Route: 065
     Dates: start: 20120907
  2. VELCADE [Suspect]
     Dosage: 3 MG/M2, UNK
     Route: 065
     Dates: start: 20121026
  3. ENDOXAN [Suspect]
     Indication: PRODUCT USED FOR UNKNOWN INDICATION
     Dosage: 300 MG/M2, UNK
     Route: 065
     Dates: start: 20120907
  4. ENDOXAN [Suspect]
     Dosage: 500 MG/M2, UNK
     Route: 065
  5. DEXAMETHASONE [Concomitant]
     Indication: PRODUCT USED FOR UNKNOWN INDICATION
     Dosage: 15 MG, UNK
  6. DEXAMETHASONE [Concomitant]
     Dosage: 40 MG, UNK
     Dates: start: 20120907
  7. ZELITREX                           /01269701/ [Concomitant]
     Indication: PRODUCT USED FOR UNKNOWN INDICATION
  8. INEXIUM /01479302/ [Concomitant]
  9. STILNOX                            /00914901/ [Concomitant]
  10. LASILIX                            /00032601/ [Concomitant]
  11. V-FEN [Concomitant]
  12. LEXOMIL [Concomitant]
  13. TOPALGIC                           /00599202/ [Concomitant]
  14. MOTILIUM                           /00498201/ [Concomitant]
  15. AUGMENTIN                          /00756801/ [Concomitant]
  16. SMECTA                             /00837601/ [Concomitant]
  17. ZOPHREN                            /00955301/ [Concomitant]
  18. IMODIUM                            /00384302/ [Concomitant]
  19. EPREX [Concomitant]
  20. TIORFAN [Concomitant]

REACTIONS (6)
  - Septic shock [Recovered/Resolved]
  - Pancytopenia [Recovered/Resolved]
  - Diarrhoea [Recovered/Resolved]
  - Dehydration [Recovered/Resolved]
  - Hypokalaemia [Recovered/Resolved]
  - Pneumonia [Unknown]
